FAERS Safety Report 6641363-6 (Version None)
Quarter: 2010Q1

REPORT INFORMATION
  Report Type: 
  Country: None (occurrence: None)
  Receive Date: 20100318
  Receipt Date: 20090601
  Transmission Date: 20100710
  Serious: Yes (Death)
  Sender: FDA-Public Use
  Company Number: PHEH2009US18958

PATIENT
  Sex: Female
  Weight: 83.492 kg

DRUGS (1)
  1. TASIGNA [Suspect]
     Indication: SMALL INTESTINE CARCINOMA
     Dosage: 400 MG, BID
     Dates: start: 20090423

REACTIONS (1)
  - DEATH [None]
